FAERS Safety Report 4470786-9 (Version None)
Quarter: 2004Q4

REPORT INFORMATION
  Report Type: 
  Country: None (occurrence: None)
  Receive Date: 20041006
  Receipt Date: 20040924
  Transmission Date: 20050328
  Serious: Yes (Hospitalization, Other)
  Sender: FDA-Public Use
  Company Number: HQWYE387328SEP04

PATIENT
  Age: 9 Year
  Sex: Female

DRUGS (3)
  1. DIAMOX (ACETAZOLAMIDE, TABLET)LOT NO 27127 [Suspect]
     Indication: HYDROCEPHALUS
     Dosage: 1G 1X PER 1  DAY
     Route: 048
     Dates: start: 20040904
  2. URBANYL (CLOBAZAM) [Concomitant]
  3. VALPARIN (VALPROATE SODIUM) [Concomitant]

REACTIONS (8)
  - BALANCE DISORDER [None]
  - EYE DISORDER [None]
  - PALLOR [None]
  - PERIPHERAL COLDNESS [None]
  - SOMNOLENCE [None]
  - URINE OUTPUT DECREASED [None]
  - VOMITING [None]
  - WHEEZING [None]
